FAERS Safety Report 8539349 (Version 2)
Quarter: 2012Q4

REPORT INFORMATION
  Report Type: 
  Country: US (occurrence: US)
  Receive Date: 20120501
  Receipt Date: 20121206
  Transmission Date: 20130627
  Serious: Yes (Other)
  Sender: FDA-Public Use
  Company Number: US-ROCHE-1022444

PATIENT
  Sex: Female
  Weight: 45.85 kg

DRUGS (4)
  1. ACCUTANE [Suspect]
     Indication: SKIN DISORDER
     Route: 065
     Dates: start: 1997, end: 2002
  2. PAXIL [Concomitant]
  3. VICODIN [Concomitant]
  4. DARVOCET [Concomitant]

REACTIONS (12)
  - Colitis ulcerative [Unknown]
  - Inflammatory bowel disease [Unknown]
  - Bipolar disorder [Unknown]
  - Ileus paralytic [Unknown]
  - Polyp [Unknown]
  - Borderline personality disorder [Unknown]
  - Diverticulitis [Unknown]
  - Post-traumatic stress disorder [Unknown]
  - Depression [Unknown]
  - Suicidal ideation [Unknown]
  - Irritable bowel syndrome [Unknown]
  - Clavicle fracture [Unknown]
